FAERS Safety Report 11598152 (Version 1)
Quarter: 2015Q3

REPORT INFORMATION
  Report Type: Spontaneous
  Country: US (occurrence: US)
  Receive Date: 20150916
  Receipt Date: 20150916
  Transmission Date: 20151125
  Serious: No
  Sender: FDA-Public Use
  Company Number: US-ELI_LILLY_AND_COMPANY-US200712005208

PATIENT
  Sex: Female

DRUGS (4)
  1. FORTEO [Suspect]
     Active Substance: TERIPARATIDE
     Indication: OSTEOPOROSIS
     Dates: start: 20071221
  2. FORTEO [Suspect]
     Active Substance: TERIPARATIDE
  3. CALCIUM [Concomitant]
     Active Substance: CALCIUM
     Dosage: 400 MG, 2/D
  4. FORTEO [Suspect]
     Active Substance: TERIPARATIDE

REACTIONS (5)
  - Injection site pain [Not Recovered/Not Resolved]
  - Injection site haemorrhage [Not Recovered/Not Resolved]
  - Scratch [Recovered/Resolved]
  - Injection site bruising [Not Recovered/Not Resolved]
  - Wound haemorrhage [Recovered/Resolved]
